FAERS Safety Report 21593185 (Version 2)
Quarter: 2022Q4

REPORT INFORMATION
  Report Type: Spontaneous
  Country: US (occurrence: US)
  Receive Date: 20221114
  Receipt Date: 20221226
  Transmission Date: 20230113
  Serious: Yes (Other)
  Sender: FDA-Public Use
  Company Number: US-JNJFOC-20221123703

PATIENT
  Age: 3 Decade
  Sex: Female

DRUGS (21)
  1. ELMIRON [Suspect]
     Active Substance: PENTOSAN POLYSULFATE SODIUM
     Indication: Cystitis interstitial
     Dosage: CONTINUOUSLY AND DAILY
     Route: 048
     Dates: start: 2005, end: 201407
  2. AZITHROMYCIN [Concomitant]
     Active Substance: AZITHROMYCIN
     Indication: Antibiotic therapy
     Dates: start: 20110902, end: 20160324
  3. AMITRIPTYLINE [Concomitant]
     Active Substance: AMITRIPTYLINE
     Indication: Antidepressant therapy
     Dates: start: 20100517, end: 20201122
  4. BENZONATATE [Concomitant]
     Active Substance: BENZONATATE
     Indication: Antitussive therapy
     Dates: start: 20110902, end: 20181115
  5. BENZTROPINE MESYLATE [Concomitant]
     Active Substance: BENZTROPINE MESYLATE
     Indication: Anticholinergic syndrome
     Dates: start: 20110812, end: 20120421
  6. CAMPRAL [Concomitant]
     Active Substance: ACAMPROSATE CALCIUM
     Indication: Alcohol use disorder
     Dates: start: 20110128, end: 20111230
  7. CHANTIX [Concomitant]
     Active Substance: VARENICLINE TARTRATE
     Indication: Smoking cessation therapy
     Dates: start: 20110224, end: 20131105
  8. CHERATUSSIN AC [Concomitant]
     Active Substance: CODEINE PHOSPHATE\GUAIFENESIN
     Indication: Antitussive therapy
     Dates: start: 20101205, end: 20150325
  9. CIPROFLOXACIN HYDROCHLORIDE [Concomitant]
     Active Substance: CIPROFLOXACIN HYDROCHLORIDE
     Indication: Antibiotic therapy
     Dates: start: 20100228, end: 20150420
  10. CITALOPRAM [Concomitant]
     Active Substance: CITALOPRAM HYDROBROMIDE
     Indication: Antidepressant therapy
     Dates: start: 20110520, end: 20120219
  11. ACETAMINOPHEN\HYDROCODONE [Concomitant]
     Active Substance: ACETAMINOPHEN\HYDROCODONE
     Indication: Pain
     Dates: start: 20100526, end: 20200827
  12. HYDROXYZINE PAMOATE [Concomitant]
     Active Substance: HYDROXYZINE PAMOATE
     Indication: Antiallergic therapy
     Dates: start: 20111107, end: 20200116
  13. IBUPROFEN [Concomitant]
     Active Substance: IBUPROFEN
     Indication: Antiinflammatory therapy
     Dates: start: 20100107, end: 20171105
  14. JOLIVETTE [Concomitant]
     Active Substance: NORETHINDRONE
     Indication: Contraception
     Dates: start: 20110119, end: 20150318
  15. LYRICA [Concomitant]
     Active Substance: PREGABALIN
     Indication: Neuralgia
     Dates: start: 20100513, end: 20170403
  16. METHYLPREDNISOLONE [Concomitant]
     Active Substance: METHYLPREDNISOLONE
     Indication: Antiinflammatory therapy
     Dates: start: 20110906, end: 20150801
  17. MORPHINE SULFATE [Concomitant]
     Active Substance: MORPHINE SULFATE
     Indication: Pain
     Dates: start: 20100513, end: 20201004
  18. NAPROXEN [Concomitant]
     Active Substance: NAPROXEN
     Indication: Antiinflammatory therapy
     Dates: start: 20111101, end: 20210105
  19. NICOTINE [Concomitant]
     Active Substance: NICOTINE
     Indication: Smoking cessation therapy
     Dosage: 21 MG/24 HR
     Dates: start: 20110119, end: 20200624
  20. PHENAZOPYRIDINE [Concomitant]
     Active Substance: PHENAZOPYRIDINE
     Indication: Urinary tract disorder
     Dates: start: 20110411, end: 20201130
  21. TRAZODONE [Concomitant]
     Active Substance: TRAZODONE HYDROCHLORIDE
     Indication: Antidepressant therapy
     Dates: start: 20110812, end: 20190724

REACTIONS (1)
  - Visual impairment [Unknown]

NARRATIVE: CASE EVENT DATE: 20110101
